FAERS Safety Report 8457322-7 (Version None)
Quarter: 2012Q2

REPORT INFORMATION
  Report Type: 
  Country: None (occurrence: None)
  Receive Date: 20120621
  Receipt Date: 20120614
  Transmission Date: 20120825
  Serious: Yes (Other)
  Sender: FDA-Public Use
  Company Number: BR-PFIZER INC-2012122201

PATIENT
  Age: 9 Month
  Sex: Male

DRUGS (1)
  1. DEPO-PROVERA [Suspect]
     Indication: CONTRACEPTION
     Dosage: 150 MG, EVERY 3 MONTHS
     Route: 064
     Dates: start: 20110101, end: 20110201

REACTIONS (10)
  - VISUAL IMPAIRMENT [None]
  - VIRAL INFECTION [None]
  - PREMATURE BABY [None]
  - PYREXIA [None]
  - PNEUMONIA [None]
  - INFLUENZA [None]
  - EYELID FUNCTION DISORDER [None]
  - MOVEMENT DISORDER [None]
  - MATERNAL EXPOSURE TIMING UNSPECIFIED [None]
  - MATERNAL DRUGS AFFECTING FOETUS [None]
